FAERS Safety Report 8497586-7 (Version None)
Quarter: 2012Q3

REPORT INFORMATION
  Report Type: 
  Country: None (occurrence: None)
  Receive Date: 20120709
  Receipt Date: 20120601
  Transmission Date: 20120928
  Serious: No
  Sender: FDA-Public Use
  Company Number: US-AMGEN-USASP2012022672

PATIENT
  Age: 61 Year
  Sex: Female

DRUGS (7)
  1. ASPIRIN [Concomitant]
     Indication: CARDIAC FAILURE CONGESTIVE
     Dosage: 81 MG, QD
     Route: 048
  2. CARVEDILOL [Concomitant]
     Indication: CARDIAC FAILURE CONGESTIVE
     Dosage: 12.5 MG, BID
  3. SIMVASTATIN [Concomitant]
     Indication: DYSLIPIDAEMIA
     Dosage: 20 MG, QHS
     Route: 048
  4. COMBIVENT [Concomitant]
     Indication: CHRONIC OBSTRUCTIVE PULMONARY DISEASE
     Dosage: 18-103, 2 PUFFS QID
  5. VICODIN [Concomitant]
     Indication: PAIN
     Dosage: 5-500 MG, TID
     Route: 048
  6. ENBREL [Suspect]
     Indication: PSORIASIS
     Dosage: 50 MG, QWK
     Route: 058
     Dates: start: 20110323
  7. ASPIRIN [Concomitant]
     Indication: CORONARY ARTERY DISEASE

REACTIONS (7)
  - PSORIASIS [None]
  - COUGH [None]
  - SNEEZING [None]
  - LACRIMATION INCREASED [None]
  - RHINORRHOEA [None]
  - BRONCHITIS [None]
  - INJECTION SITE HAEMATOMA [None]
